FAERS Safety Report 18217879 (Version 1)
Quarter: 2020Q3

REPORT INFORMATION
  Report Type: Spontaneous
  Country: US (occurrence: US)
  Receive Date: 20200828
  Receipt Date: 20200828
  Transmission Date: 20201103
  Serious: No
  Sender: FDA-Public Use
  Company Number: None

PATIENT
  Age: 35 Year
  Sex: Female
  Weight: 99.79 kg

DRUGS (1)
  1. NUVA RING GENERIC [Suspect]
     Active Substance: ETHINYL ESTRADIOL\ETONOGESTREL
     Indication: CONTRACEPTION
     Dosage: ?          OTHER DOSE:0.12?0.015;OTHER FREQUENCY:9 MONTH;OTHER ROUTE:PV?
     Dates: start: 20200110

REACTIONS (3)
  - Headache [None]
  - Vulvovaginal mycotic infection [None]
  - Breast pain [None]
